FAERS Safety Report 13226866 (Version 1)
Quarter: 2017Q1

REPORT INFORMATION
  Report Type: Spontaneous
  Country: IT (occurrence: IT)
  Receive Date: 20170213
  Receipt Date: 20170213
  Transmission Date: 20170428
  Serious: Yes (Other)
  Sender: FDA-Public Use
  Company Number: IT-SA-2017SA019896

PATIENT
  Age: 61 Year
  Sex: Male

DRUGS (7)
  1. CALCIUM LEVOFOLINATE [Suspect]
     Active Substance: LEVOLEUCOVORIN CALCIUM
     Indication: COLON NEOPLASM
     Route: 042
  2. 5-FU [Suspect]
     Active Substance: FLUOROURACIL
     Indication: COLON NEOPLASM
     Route: 042
     Dates: start: 20170125, end: 20170125
  3. OXALIPLATIN. [Suspect]
     Active Substance: OXALIPLATIN
     Indication: COLON NEOPLASM
     Route: 042
     Dates: start: 20170125, end: 20170125
  4. PANITUMUMAB [Suspect]
     Active Substance: PANITUMUMAB
     Indication: COLON NEOPLASM
     Route: 042
     Dates: start: 20170123, end: 20170123
  5. PANITUMUMAB [Suspect]
     Active Substance: PANITUMUMAB
     Indication: COLON NEOPLASM
     Route: 042
     Dates: start: 20170125, end: 20170125
  6. 5-FU [Suspect]
     Active Substance: FLUOROURACIL
     Indication: COLON NEOPLASM
     Route: 042
     Dates: start: 20170123, end: 20170123
  7. OXALIPLATIN. [Suspect]
     Active Substance: OXALIPLATIN
     Indication: COLON NEOPLASM
     Route: 042
     Dates: start: 20170123, end: 20170123

REACTIONS (2)
  - Folliculitis [Not Recovered/Not Resolved]
  - Skin lesion [Not Recovered/Not Resolved]

NARRATIVE: CASE EVENT DATE: 20170201
